FAERS Safety Report 5685839-7 (Version None)
Quarter: 2008Q1

REPORT INFORMATION
  Report Type: 
  Country: None (occurrence: None)
  Receive Date: 20080328
  Receipt Date: 20080225
  Transmission Date: 20080703
  Serious: No
  Sender: FDA-Public Use
  Company Number: US-BAYER-200814812NA

PATIENT
  Sex: Male

DRUGS (2)
  1. AVELOX [Suspect]
     Indication: SINUSITIS
     Route: 048
  2. ADVIL [Concomitant]

REACTIONS (4)
  - RASH [None]
  - SWELLING FACE [None]
  - TENDON PAIN [None]
  - VOMITING [None]
